FAERS Safety Report 6286357-8 (Version None)
Quarter: 2009Q3

REPORT INFORMATION
  Report Type: 
  Country: None (occurrence: None)
  Receive Date: 20090727
  Receipt Date: 20090727
  Transmission Date: 20100115
  Serious: Yes (Other)
  Sender: FDA-Public Use
  Company Number: None

PATIENT
  Age: 48 Year
  Sex: Male
  Weight: 84 kg

DRUGS (10)
  1. GEODON [Suspect]
     Indication: AGGRESSION
     Dosage: 80MG  QAM PO
     Route: 048
     Dates: start: 20090224, end: 20090506
  2. CALCIUM W/D/MULTIVITIMAN DAILY [Concomitant]
  3. LYRICA [Concomitant]
  4. TOPAMAX [Concomitant]
  5. ASPIRIN [Concomitant]
  6. LAMICTAL [Concomitant]
  7. DIASTAT [Concomitant]
  8. BEANO TAB [Concomitant]
  9. TYLENOL (CAPLET) [Concomitant]
  10. GEODON [Suspect]
     Indication: AUTISM SPECTRUM DISORDER
     Dosage: 40MG QHS PO
     Route: 048
     Dates: start: 20090224, end: 20090506

REACTIONS (1)
  - ERECTILE DYSFUNCTION [None]
